FAERS Safety Report 10807093 (Version 1)
Quarter: 2015Q1

REPORT INFORMATION
  Report Type: Report from Study
  Country: US (occurrence: US)
  Receive Date: 20150217
  Receipt Date: 20150217
  Transmission Date: 20150721
  Serious: No
  Sender: FDA-Public Use
  Company Number: US-ABBVIE-14K-163-1239521-00

PATIENT
  Age: 29 Year
  Sex: Male

DRUGS (11)
  1. TRAMADOL [Concomitant]
     Active Substance: TRAMADOL
     Indication: PRODUCT USED FOR UNKNOWN INDICATION
  2. HUMIRA [Suspect]
     Active Substance: ADALIMUMAB
     Indication: ANKYLOSING SPONDYLITIS
     Dates: start: 2012
  3. HUMIRA [Suspect]
     Active Substance: ADALIMUMAB
  4. CYMBALTA [Concomitant]
     Active Substance: DULOXETINE HYDROCHLORIDE
     Indication: DEPRESSION
  5. PREDNISONE. [Suspect]
     Active Substance: PREDNISONE
  6. VALIUM [Concomitant]
     Active Substance: DIAZEPAM
     Indication: PRODUCT USED FOR UNKNOWN INDICATION
     Dosage: ONE TABLET TID AND TWO TABLETS AT BEDTIME, WEANING OFF OF VALIUM 5 MG PER MONTH
  7. CELEBREX [Concomitant]
     Active Substance: CELECOXIB
     Indication: PRODUCT USED FOR UNKNOWN INDICATION
  8. PREDNISONE. [Suspect]
     Active Substance: PREDNISONE
     Indication: ANKYLOSING SPONDYLITIS
  9. MELOXICAM. [Concomitant]
     Active Substance: MELOXICAM
     Indication: ANKYLOSING SPONDYLITIS
  10. SUBUTEX [Concomitant]
     Active Substance: BUPRENORPHINE HYDROCHLORIDE
     Indication: PAIN
  11. CYMBALTA [Concomitant]
     Active Substance: DULOXETINE HYDROCHLORIDE
     Indication: PAIN

REACTIONS (18)
  - Nasopharyngitis [Not Recovered/Not Resolved]
  - Arthralgia [Unknown]
  - Sinusitis [Unknown]
  - Headache [Not Recovered/Not Resolved]
  - Incorrect product storage [Unknown]
  - Ankylosing spondylitis [Unknown]
  - Wound infection [Unknown]
  - Crying [Unknown]
  - Laceration [Unknown]
  - Spinal pain [Unknown]
  - Influenza like illness [Not Recovered/Not Resolved]
  - Exostosis [Unknown]
  - Overdose [Unknown]
  - Emotional disorder [Unknown]
  - Activities of daily living impaired [Unknown]
  - Pain [Unknown]
  - Lung infection [Unknown]
  - Depression [Unknown]

NARRATIVE: CASE EVENT DATE: 201312
